FAERS Safety Report 4486517-2 (Version None)
Quarter: 2004Q4

REPORT INFORMATION
  Report Type: 
  Country: None (occurrence: None)
  Receive Date: 20041021
  Receipt Date: 20041012
  Transmission Date: 20050328
  Serious: Yes (Death)
  Sender: FDA-Public Use
  Company Number: GB-JNJFOC-20041003721

PATIENT
  Age: 22 Year
  Sex: Male

DRUGS (1)
  1. ACETAMINOPHEN [Suspect]
     Indication: INTENTIONAL MISUSE
     Dosage: 32 G, 1 IN 1 TOTAL

REACTIONS (8)
  - BLOOD CREATININE INCREASED [None]
  - CARDIAC ARREST [None]
  - HEPATIC ENCEPHALOPATHY [None]
  - HEPATIC FAILURE [None]
  - INTENTIONAL OVERDOSE [None]
  - OLIGURIA [None]
  - ORGAN DONOR [None]
  - PUPIL FIXED [None]
